FAERS Safety Report 5140930-9 (Version None)
Quarter: 2006Q4

REPORT INFORMATION
  Report Type: 
  Country: None (occurrence: None)
  Receive Date: 20061026
  Receipt Date: 20061026
  Transmission Date: 20070319
  Serious: Yes (Hospitalization)
  Sender: FDA-Public Use
  Company Number: None

PATIENT
  Age: 82 Year
  Sex: Male

DRUGS (3)
  1. WARFARIN SODIUM [Suspect]
     Indication: AMAUROSIS
     Dosage: 3.75 T/TH/SA/5 MG POW
     Route: 048
  2. WARFARIN SODIUM [Suspect]
     Indication: ATRIAL FIBRILLATION
     Dosage: 3.75 T/TH/SA/5 MG POW
     Route: 048
  3. CELECOXIB [Suspect]
     Dosage: 260 MG DAILY

REACTIONS (5)
  - DIZZINESS POSTURAL [None]
  - GASTROINTESTINAL ULCER [None]
  - HAEMATOCRIT DECREASED [None]
  - INTERNATIONAL NORMALISED RATIO INCREASED [None]
  - PRESYNCOPE [None]
